FAERS Safety Report 8343954-3 (Version None)
Quarter: 2012Q2

REPORT INFORMATION
  Report Type: 
  Country: None (occurrence: None)
  Receive Date: 20120508
  Receipt Date: 20120508
  Transmission Date: 20120825
  Serious: Yes (Hospitalization, Other)
  Sender: FDA-Public Use
  Company Number: US-TEVA-333851USA

PATIENT
  Age: 32 Year
  Sex: Male

DRUGS (2)
  1. AZITHROMYCIN [Suspect]
     Indication: PNEUMONIA
     Dosage: 500MG
     Route: 065
  2. TYLENOL W/ CODEINE NO. 3 [Concomitant]
     Indication: PNEUMONIA
     Route: 065

REACTIONS (1)
  - RHABDOMYOLYSIS [None]
